FAERS Safety Report 17757499 (Version 1)
Quarter: 2020Q2

REPORT INFORMATION
  Report Type: Spontaneous
  Country: CN (occurrence: CN)
  Receive Date: 20200507
  Receipt Date: 20200507
  Transmission Date: 20200714
  Serious: Yes (Other)
  Sender: FDA-Public Use
  Company Number: CN-BRACCO-2020CN01844

PATIENT
  Age: 51 Year
  Sex: Female

DRUGS (1)
  1. IOPAMIRO [Suspect]
     Active Substance: IOPAMIDOL
     Indication: ANGIOCARDIOGRAM
     Dosage: 37.5 G, SINGLE
     Route: 041
     Dates: start: 20200321, end: 20200321

REACTIONS (7)
  - Palpitations [Recovering/Resolving]
  - Asthenia [Recovering/Resolving]
  - Chest discomfort [Recovering/Resolving]
  - Bradycardia [Recovering/Resolving]
  - Dizziness [Recovering/Resolving]
  - Abdominal distension [Recovering/Resolving]
  - Hyperhidrosis [Recovering/Resolving]

NARRATIVE: CASE EVENT DATE: 20200321
